FAERS Safety Report 6051583-X (Version None)
Quarter: 2009Q1

REPORT INFORMATION
  Report Type: 
  Country: None (occurrence: None)
  Receive Date: 20090126
  Receipt Date: 20090122
  Transmission Date: 20090719
  Serious: Yes (Other)
  Sender: FDA-Public Use
  Company Number: D0060105A

PATIENT
  Sex: Female
  Weight: 3.8 kg

DRUGS (1)
  1. RETROVIR [Suspect]
     Indication: EXPOSURE TO COMMUNICABLE DISEASE
     Dosage: 2MGK FOUR TIMES PER DAY
     Route: 048
     Dates: start: 20081213, end: 20090114

REACTIONS (1)
  - SUPRAVENTRICULAR EXTRASYSTOLES [None]
